FAERS Safety Report 19205242 (Version 3)
Quarter: 2021Q3

REPORT INFORMATION
  Report Type: Other
  Country: JP (occurrence: JP)
  Receive Date: 20210503
  Receipt Date: 20210730
  Transmission Date: 20211014
  Serious: Yes (Hospitalization)
  Sender: FDA-Public Use
  Company Number: JP-ROCHE-2819968

PATIENT
  Age: 64 Year
  Sex: Male
  Weight: 78.5 kg

DRUGS (4)
  1. BEVACIZUMAB. [Suspect]
     Active Substance: BEVACIZUMAB
     Indication: LUNG ADENOCARCINOMA
     Route: 041
     Dates: start: 20210406, end: 20210406
  2. ATEZOLIZUMAB. [Suspect]
     Active Substance: ATEZOLIZUMAB
     Indication: LUNG ADENOCARCINOMA
     Route: 041
     Dates: start: 20210406, end: 20210406
  3. PACLITAXEL. [Suspect]
     Active Substance: PACLITAXEL
     Indication: LUNG ADENOCARCINOMA
     Route: 041
     Dates: start: 20210406, end: 20210406
  4. CARBOPLATIN. [Suspect]
     Active Substance: CARBOPLATIN
     Indication: LUNG ADENOCARCINOMA
     Route: 041
     Dates: start: 20210406, end: 20210406

REACTIONS (3)
  - Meningitis [Recovering/Resolving]
  - Febrile neutropenia [Recovered/Resolved]
  - Encephalitis [Recovering/Resolving]

NARRATIVE: CASE EVENT DATE: 20210414
